FAERS Safety Report 23473957 (Version 4)
Quarter: 2024Q1

REPORT INFORMATION
  Report Type: Spontaneous
  Country: CO (occurrence: None)
  Receive Date: 20240203
  Receipt Date: 20240226
  Transmission Date: 20240409
  Serious: Yes (Hospitalization)
  Sender: FDA-Public Use
  Company Number: CO-ROCHE-3503159

PATIENT
  Age: 41 Year
  Sex: Female
  Weight: 40 kg

DRUGS (1)
  1. OCRELIZUMAB [Suspect]
     Active Substance: OCRELIZUMAB
     Indication: Multiple sclerosis
     Dosage: SINGLE DOSE - FREQUENCY WAS NOT DESCRIBED.?LAST DOSE ON NOV/2023
     Route: 042
     Dates: start: 20201106, end: 202303

REACTIONS (3)
  - Febrile neutropenia [Unknown]
  - Pyuria [Unknown]
  - Pain [Not Recovered/Not Resolved]
